FAERS Safety Report 13676291 (Version 2)
Quarter: 2017Q4

REPORT INFORMATION
  Report Type: Spontaneous
  Country: US (occurrence: US)
  Receive Date: 20170622
  Receipt Date: 20171205
  Transmission Date: 20180320
  Serious: Yes (Other)
  Sender: FDA-Public Use
  Company Number: US-ASTRAZENECA-2017SE63598

PATIENT
  Age: 64 Year
  Sex: Female
  Weight: 61.7 kg

DRUGS (4)
  1. IBRANCE [Suspect]
     Active Substance: PALBOCICLIB
     Indication: BREAST CANCER METASTATIC
     Route: 048
     Dates: start: 201608
  2. XGEVA [Concomitant]
     Active Substance: DENOSUMAB
     Indication: PROPHYLAXIS
     Dosage: EVERY THREE MONTHS
  3. FASLODEX [Suspect]
     Active Substance: FULVESTRANT
     Indication: BREAST CANCER METASTATIC
     Dosage: 500MG,MONTHLY
     Route: 030
     Dates: start: 201608
  4. ARIMIDEX [Suspect]
     Active Substance: ANASTROZOLE
     Route: 048
     Dates: start: 2012, end: 201608

REACTIONS (20)
  - Intestinal metastasis [Unknown]
  - Cough [Unknown]
  - Metastasis [Unknown]
  - Gastrointestinal tract irritation [Unknown]
  - Intentional product misuse [Unknown]
  - Injection site pain [Unknown]
  - Injection site mass [Unknown]
  - Cognitive disorder [Unknown]
  - Metastases to bone [Unknown]
  - Malignant neoplasm progression [Unknown]
  - Pain [Unknown]
  - Gastrointestinal wall thickening [Unknown]
  - Sciatica [Recovered/Resolved]
  - Fatigue [Unknown]
  - Asthenia [Unknown]
  - Injection site haemorrhage [Unknown]
  - Underdose [Unknown]
  - Body height decreased [Not Recovered/Not Resolved]
  - Vomiting [Unknown]
  - Injection site bruising [Unknown]

NARRATIVE: CASE EVENT DATE: 2012
